FAERS Safety Report 7703130-1 (Version None)
Quarter: 2011Q3

REPORT INFORMATION
  Report Type: 
  Country: None (occurrence: None)
  Receive Date: 20110817
  Receipt Date: 20110805
  Transmission Date: 20111222
  Serious: Yes (Hospitalization)
  Sender: FDA-Public Use
  Company Number: US-2011-10562

PATIENT
  Age: 48 Year
  Sex: Female

DRUGS (9)
  1. OPC-41061 (TOLVAPTAN) TABLET, 15MG MILLIGRAM(S) [Suspect]
     Indication: CONGENITAL CYSTIC KIDNEY DISEASE
     Dosage: 60 MG MILLIGRAM(S), DAILY DOSE, ORAL
     Route: 048
     Dates: start: 20110615, end: 20110713
  2. PAXIL [Concomitant]
  3. VITAMIN D [Concomitant]
  4. LISINOPRIL [Concomitant]
  5. ACETAMINOPHEN [Concomitant]
  6. PRILOSEC (OMEPRAZOLE MAGNESIUM) [Concomitant]
  7. MULTI VITAMIN AND MINERAL + SELENIUM (CHOLINE BITARTRATE, MINERALS NOS [Concomitant]
  8. OMEGA-3 (DOCOSAHEXANOIC ACID, EICOSAPENTAENOIC ACID) [Concomitant]
  9. PROCRIT [Concomitant]

REACTIONS (4)
  - PYREXIA [None]
  - RENAL FAILURE ACUTE [None]
  - ANAEMIA [None]
  - CHILLS [None]
